FAERS Safety Report 8585920-9 (Version None)
Quarter: 2012Q3

REPORT INFORMATION
  Report Type: 
  Country: None (occurrence: None)
  Receive Date: 20120802
  Receipt Date: 20120802
  Transmission Date: 20120928
  Serious: Yes (Disabling, Other)
  Sender: FDA-Public Use
  Company Number: None

PATIENT
  Sex: Male
  Weight: 77.1115 kg

DRUGS (1)
  1. OMEPRAZOLE [Suspect]
     Indication: GASTROOESOPHAGEAL REFLUX DISEASE
     Dosage: ONE EACH 2 X DAY
     Dates: start: 20020415, end: 20120630

REACTIONS (3)
  - GAIT DISTURBANCE [None]
  - SPINAL COLUMN STENOSIS [None]
  - INTERVERTEBRAL DISC PROTRUSION [None]
